FAERS Safety Report 4393541-7 (Version None)
Quarter: 2004Q3

REPORT INFORMATION
  Report Type: 
  Country: None (occurrence: None)
  Receive Date: 20040706
  Receipt Date: 20040706
  Transmission Date: 20050211
  Serious: Yes (Hospitalization)
  Sender: FDA-Public Use
  Company Number: None

PATIENT
  Age: 57 Year
  Sex: Male
  Weight: 80.7403 kg

DRUGS (2)
  1. DESIPRAMINE HCL [Suspect]
     Dosage: 150 MG PO BID
     Route: 048
  2. HYDROCHLOROTHIAZIDE [Suspect]

REACTIONS (1)
  - HYPONATRAEMIA [None]
